FAERS Safety Report 24346603 (Version 1)
Quarter: 2024Q3

REPORT INFORMATION
  Report Type: Spontaneous
  Country: US (occurrence: US)
  Receive Date: 20240921
  Receipt Date: 20240921
  Transmission Date: 20241016
  Serious: No
  Sender: CIPLA
  Company Number: US-CIPLA LTD.-2024US01353

PATIENT

DRUGS (8)
  1. ALENDRONATE [Suspect]
     Active Substance: ALENDRONATE SODIUM
     Indication: Osteoporosis
     Dosage: 1 DOSAGE FORM, ONCE A WEEK
     Route: 048
     Dates: start: 202310
  2. SIMVASTATIN [Concomitant]
     Active Substance: SIMVASTATIN
     Indication: Blood cholesterol abnormal
     Dosage: 40 MILLIGRAM, QD
     Route: 065
     Dates: start: 2014
  3. METOPROLOL [Concomitant]
     Active Substance: METOPROLOL
     Indication: Hypertension
     Dosage: 25 MILLIGRAM, BID
     Route: 065
     Dates: start: 2014
  4. FLECAINIDE ACETATE [Concomitant]
     Active Substance: FLECAINIDE ACETATE
     Indication: Atrial fibrillation
     Dosage: 50 MILLIGRAM, BID
     Route: 065
     Dates: start: 2022
  5. ELIQUIS [Concomitant]
     Active Substance: APIXABAN
     Indication: Heart rate irregular
     Dosage: 5 MILLIGRAM, BID (1 TABLET, EVERY 12 HOURS)
     Route: 065
     Dates: start: 2022
  6. ELIQUIS [Concomitant]
     Active Substance: APIXABAN
     Indication: Atrial fibrillation
  7. CALCIUM [Concomitant]
     Active Substance: CALCIUM
     Indication: Mineral supplementation
     Dosage: 600 MILLIGRAM, BID
     Route: 065
     Dates: start: 2014
  8. FISH OIL [Concomitant]
     Active Substance: FISH OIL
     Indication: Blood cholesterol abnormal
     Dosage: 1000 MILLIGRAM, QD
     Route: 065
     Dates: start: 2014

REACTIONS (1)
  - Dental restoration failure [Not Recovered/Not Resolved]

NARRATIVE: CASE EVENT DATE: 20240127
